FAERS Safety Report 7954997-3 (Version None)
Quarter: 2011Q4

REPORT INFORMATION
  Report Type: 
  Country: None (occurrence: None)
  Receive Date: 20111202
  Receipt Date: 20111124
  Transmission Date: 20120403
  Serious: Yes (Hospitalization, Other)
  Sender: FDA-Public Use
  Company Number: PHHY2011PL098659

PATIENT
  Age: 50 Year
  Sex: Female
  Weight: 58 kg

DRUGS (2)
  1. AMLODIPINE [Suspect]
     Dosage: 200 MG, UNK
  2. ETHANOL [Concomitant]

REACTIONS (12)
  - THROMBOSIS [None]
  - DYSPHAGIA [None]
  - ELECTROLYTE IMBALANCE [None]
  - ABDOMINAL PAIN [None]
  - ALTERED STATE OF CONSCIOUSNESS [None]
  - HYPERCHLORAEMIA [None]
  - SUICIDE ATTEMPT [None]
  - METABOLIC ACIDOSIS [None]
  - HAEMATOCHEZIA [None]
  - GASTROINTESTINAL HAEMORRHAGE [None]
  - GASTRIC ULCER [None]
  - HYPERNATRAEMIA [None]
